FAERS Safety Report 4661644-5 (Version None)
Quarter: 2005Q2

REPORT INFORMATION
  Report Type: 
  Country: None (occurrence: None)
  Receive Date: 20050511
  Receipt Date: 20050511
  Transmission Date: 20051028
  Serious: Yes (Hospitalization)
  Sender: FDA-Public Use
  Company Number: None

PATIENT
  Age: 90 Year
  Sex: Male

DRUGS (8)
  1. TRAMADOL [Suspect]
     Indication: PAIN
     Dosage: 50 MG TID PRN
     Dates: start: 20050121
  2. FOSINOPRIL [Suspect]
     Indication: HYPERTENSION
     Dosage: 5 MG QD
     Dates: start: 20041012
  3. METHOCARBAMOL [Suspect]
     Indication: MUSCLE RELAXANT THERAPY
     Dosage: 500 MG TID
     Dates: start: 20050119
  4. LORAZEPAM [Concomitant]
  5. NITROGLYCERIN [Concomitant]
  6. SERTRALINE HCL [Concomitant]
  7. ZOCOR [Concomitant]
  8. ASPIRIN [Concomitant]

REACTIONS (2)
  - HYPERKALAEMIA [None]
  - MENTAL STATUS CHANGES [None]
